FAERS Safety Report 12961774 (Version 2)
Quarter: 2017Q1

REPORT INFORMATION
  Report Type: Spontaneous
  Country: US (occurrence: US)
  Receive Date: 20161121
  Receipt Date: 20170125
  Transmission Date: 20170428
  Serious: Yes (Hospitalization)
  Sender: FDA-Public Use
  Company Number: US-PFIZER INC-2016531404

PATIENT
  Age: 32 Year
  Sex: Female

DRUGS (2)
  1. HEMABATE [Suspect]
     Active Substance: CARBOPROST TROMETHAMINE
     Indication: UTERINE ATONY
     Dosage: 250 UG, SINGLE (X1 INADVERTENTLY PUSHED INTRAVENOUSLY INSTEAD OF ADMINISTERED INTRAMUSCULARLY)
     Route: 042
     Dates: start: 20161112
  2. HEMABATE [Suspect]
     Active Substance: CARBOPROST TROMETHAMINE
     Indication: POSTPARTUM HAEMORRHAGE

REACTIONS (5)
  - Ejection fraction decreased [Not Recovered/Not Resolved]
  - Uterine pain [Unknown]
  - Peripartum cardiomyopathy [Not Recovered/Not Resolved]
  - Incorrect route of drug administration [Unknown]
  - Hypertension [Unknown]

NARRATIVE: CASE EVENT DATE: 20161112
